FAERS Safety Report 6299141-6 (Version None)
Quarter: 2009Q3

REPORT INFORMATION
  Report Type: 
  Country: None (occurrence: None)
  Receive Date: 20090806
  Receipt Date: 20090803
  Transmission Date: 20100115
  Serious: Yes (Hospitalization)
  Sender: FDA-Public Use
  Company Number: JP-ROXANE LABORATORIES, INC.-2009-RO-00776RO

PATIENT
  Age: 53 Year
  Sex: Male

DRUGS (4)
  1. RISPERIDONE [Suspect]
     Indication: SCHIZOPHRENIA
     Dosage: 6 MG
  2. RISPERIDONE [Suspect]
     Dosage: 8 MG
  3. RISPERIDONE [Suspect]
     Dosage: 3 MG
  4. ARIPIPRAZOLE [Concomitant]
     Dosage: 18 MG

REACTIONS (1)
  - HYPOGLYCAEMIA [None]
